FAERS Safety Report 4286140-9 (Version None)
Quarter: 2004Q1

REPORT INFORMATION
  Report Type: 
  Country: None (occurrence: None)
  Receive Date: 20040114
  Receipt Date: 20030129
  Transmission Date: 20041129
  Serious: Yes (Other)
  Sender: FDA-Public Use
  Company Number: A03200300177

PATIENT
  Age: 39 Year
  Sex: Female

DRUGS (6)
  1. DEMEROL [Suspect]
     Indication: MIGRAINE
  2. LEXAPRO [Suspect]
     Indication: DEPRESSION
     Dosage: 10 MG QD ORAL
     Route: 048
     Dates: start: 20021101, end: 20021201
  3. ATIVAN [Suspect]
     Dosage: 3 MG QD UNKNOWN
     Dates: start: 20021101, end: 20021201
  4. VICODIN [Suspect]
     Indication: EYE PAIN
  5. NICOTINE [Suspect]
     Indication: EX-SMOKER
     Dosage: 14 MG QD TRANSDERMAL
     Route: 062
  6. TYLENOL (CAPLET) [Concomitant]

REACTIONS (2)
  - CONVULSION [None]
  - DRUG INTERACTION [None]
